FAERS Safety Report 23507835 (Version 1)
Quarter: 2024Q1

REPORT INFORMATION
  Report Type: Spontaneous
  Country: US (occurrence: None)
  Receive Date: 20240209
  Receipt Date: 20240209
  Transmission Date: 20240410
  Serious: Yes (Hospitalization)
  Sender: FDA-Public Use
  Company Number: None

PATIENT
  Age: 36 Year
  Sex: Female

DRUGS (3)
  1. ICATIBANT ACETATE [Suspect]
     Active Substance: ICATIBANT ACETATE
     Indication: Complement deficiency disease
     Dosage: FREQUENCY : AS DIRECTED;?
     Route: 058
     Dates: start: 202106
  2. FIRAZYR SYR [Concomitant]
  3. TAKHZYRO PFS [Concomitant]

REACTIONS (4)
  - Laryngeal oedema [None]
  - Abdominal distension [None]
  - Loss of consciousness [None]
  - Blood potassium decreased [None]

NARRATIVE: CASE EVENT DATE: 20240117
